FAERS Safety Report 13689226 (Version 1)
Quarter: 2017Q2

REPORT INFORMATION
  Report Type: Spontaneous
  Country: US (occurrence: US)
  Receive Date: 20170625
  Receipt Date: 20170625
  Transmission Date: 20170830
  Serious: Yes (Disabling)
  Sender: FDA-Public Use
  Company Number: None

PATIENT
  Age: 60 Year
  Sex: Female
  Weight: 78.75 kg

DRUGS (4)
  1. WP THYROID [Concomitant]
     Active Substance: THYROID, PORCINE
  2. GABAPENTIN. [Suspect]
     Active Substance: GABAPENTIN
     Indication: ANXIETY
     Dosage: ?          OTHER STRENGTH:MG;QUANTITY:1 CAPSULE(S);?
     Route: 048
     Dates: start: 20160206, end: 20170208
  3. GABAPENTIN. [Suspect]
     Active Substance: GABAPENTIN
     Indication: ABDOMINAL PAIN UPPER
     Dosage: ?          OTHER STRENGTH:MG;QUANTITY:1 CAPSULE(S);?
     Route: 048
     Dates: start: 20160206, end: 20170208
  4. GABAPENTIN. [Suspect]
     Active Substance: GABAPENTIN
     Indication: ARTHRALGIA
     Dosage: ?          OTHER STRENGTH:MG;QUANTITY:1 CAPSULE(S);?
     Route: 048
     Dates: start: 20160206, end: 20170208

REACTIONS (25)
  - Off label use [None]
  - Disorientation [None]
  - Fall [None]
  - Anger [None]
  - Gait disturbance [None]
  - Vision blurred [None]
  - Erythema [None]
  - Restless legs syndrome [None]
  - Emotional disorder [None]
  - Dizziness [None]
  - Balance disorder [None]
  - Concussion [None]
  - Rash [None]
  - Loss of personal independence in daily activities [None]
  - Altered visual depth perception [None]
  - Chest discomfort [None]
  - Insomnia [None]
  - Tremor [None]
  - Arthralgia [None]
  - Crying [None]
  - Head injury [None]
  - Headache [None]
  - Nervousness [None]
  - Haemorrhage [None]
  - Confusional state [None]

NARRATIVE: CASE EVENT DATE: 20160616
